FAERS Safety Report 10712232 (Version 4)
Quarter: 2015Q1

REPORT INFORMATION
  Report Type: Report from Study
  Country: DE (occurrence: DE)
  Receive Date: 20150114
  Receipt Date: 20150206
  Transmission Date: 20150721
  Serious: Yes (Death, Life-Threatening, Hospitalization, Other)
  Sender: FDA-Public Use
  Company Number: DE-GLAXOSMITHKLINE-DE2015GSK003458

PATIENT
  Age: 40 Year
  Sex: Female

DRUGS (1)
  1. BELIMUMAB [Suspect]
     Active Substance: BELIMUMAB
     Indication: SYSTEMIC LUPUS ERYTHEMATOSUS
     Dosage: UNK, WE
     Route: 058
     Dates: start: 20131211, end: 20131218

REACTIONS (3)
  - Shock haemorrhagic [Unknown]
  - Hepatic cirrhosis [Unknown]
  - Sepsis [Fatal]

NARRATIVE: CASE EVENT DATE: 2014
